FAERS Safety Report 15549867 (Version 1)
Quarter: 2018Q4

REPORT INFORMATION
  Report Type: Spontaneous
  Country: US (occurrence: US)
  Receive Date: 20181018
  Receipt Date: 20181018
  Transmission Date: 20190205
  Serious: Yes (Hospitalization)
  Sender: FDA-Public Use
  Company Number: None

PATIENT
  Age: 21 Year
  Sex: Female

DRUGS (3)
  1. TACROLIMUS 0.5MG CAP [Suspect]
     Active Substance: TACROLIMUS
     Indication: ACUTE MYELOID LEUKAEMIA
     Route: 048
     Dates: start: 20171216
  2. TACROLIMUS 0.5MG CAP [Suspect]
     Active Substance: TACROLIMUS
  3. TACROLIMUS 0.5MG CAP [Suspect]
     Active Substance: TACROLIMUS

REACTIONS (1)
  - Withdrawal syndrome [None]

NARRATIVE: CASE EVENT DATE: 20180818
